FAERS Safety Report 5525099-0 (Version None)
Quarter: 2007Q4

REPORT INFORMATION
  Report Type: 
  Country: None (occurrence: None)
  Receive Date: 20071119
  Receipt Date: 20071112
  Transmission Date: 20080405
  Serious: No
  Sender: FDA-Public Use
  Company Number: 20074250

PATIENT
  Sex: Male

DRUGS (1)
  1. LIORESAL [Suspect]
     Indication: MUSCLE SPASTICITY
     Dosage: 240 MCG, DAILY, INTRATHECAL
     Route: 037

REACTIONS (4)
  - ABASIA [None]
  - DEVICE MALFUNCTION [None]
  - HYPOTONIA [None]
  - MEDICATION ERROR [None]
